FAERS Safety Report 4548371-X (Version None)
Quarter: 2005Q1

REPORT INFORMATION
  Report Type: 
  Country: None (occurrence: None)
  Receive Date: 20050110
  Receipt Date: 20040831
  Transmission Date: 20050727
  Serious: Yes (Life-Threatening)
  Sender: FDA-Public Use
  Company Number: FR-ROCHE-379407

PATIENT
  Age: 58 Year
  Sex: Female
  Weight: 60 kg

DRUGS (6)
  1. APRANAX [Suspect]
     Route: 048
     Dates: start: 20020215, end: 20020215
  2. APRANAX [Suspect]
     Route: 048
     Dates: start: 20040701, end: 20040721
  3. MYOLASTAN [Concomitant]
     Route: 048
     Dates: start: 20040701, end: 20040721
  4. ESTRADERM [Concomitant]
  5. FLIXOTIDE [Concomitant]
  6. BRONCHODUAL [Concomitant]

REACTIONS (1)
  - BRONCHITIS [None]
